FAERS Safety Report 21305472 (Version 1)
Quarter: 2022Q3

REPORT INFORMATION
  Report Type: Spontaneous
  Country: ES (occurrence: ES)
  Receive Date: 20220908
  Receipt Date: 20220908
  Transmission Date: 20221026
  Serious: Yes (Other)
  Sender: FDA-Public Use
  Company Number: None

PATIENT
  Age: 62 Year
  Sex: Male

DRUGS (10)
  1. IBUPROFEN [Suspect]
     Active Substance: IBUPROFEN
     Indication: Analgesic therapy
     Dosage: UNIT DOSE : 600 MG,   DURATION : 1 DAYS , ORAL SOLUTION/SUSPENSION SACHET
     Route: 048
     Dates: start: 20220815, end: 20220815
  2. CANDESARTAN [Concomitant]
     Active Substance: CANDESARTAN
     Indication: Hypertension
     Dosage: STRENGTH  : 8 MG
  3. VIRIREC [Concomitant]
     Indication: Erectile dysfunction
     Dosage: STRENGTH : 3MG/G , 4 SINGLE-USE APPLICATORS (APPLICATOR PER BAG) , UNIT DOSE : 1 DOSAGE FORM, FREQUE
     Dates: start: 20220719
  4. ACORE [Concomitant]
     Indication: Erectile dysfunction
     Dosage: 5 MG FILM-COATED TABLETS EFG
     Dates: start: 20210913
  5. FERROUS SULFATE ANHYDROUS [Concomitant]
     Active Substance: FERROUS SULFATE ANHYDROUS
     Indication: Anaemia
     Dosage: IRON (II) SULFATE (1742SU) , UNIT DOSE : 1 DOSAGE FORM, FREQUENCY TIME : 1 DAY
     Dates: start: 20220629
  6. BUDESONIDE [Concomitant]
     Active Substance: BUDESONIDE
     Indication: Nasal polyps
     Dosage: 100 MICROGRAMS/DOSE PRODUCT NASAL USE
     Route: 045
     Dates: start: 20220812
  7. SILDENAFIL [Concomitant]
     Active Substance: SILDENAFIL
     Indication: Pulmonary arterial hypertension
     Dosage: STRENGTH : 100 MG 4 TABLETS
     Dates: start: 20210913
  8. INREQ [Concomitant]
     Indication: Nocturia
     Dosage: STRENGTH : 0.4 MG ,  PROLONGED-RELEASE TABLETS EFG, 30 TABLETS
     Dates: start: 20210701
  9. ACETAMINOPHEN [Concomitant]
     Active Substance: ACETAMINOPHEN
     Indication: Analgesic therapy
     Dosage: UNIT DOSE : 1 DOSAGE FORM , FREQUENCY TIME : 3 DAYS, STRENGTH : 1000MG
     Dates: start: 20220426
  10. CHONDROITIN SULFATE (CHICKEN) [Concomitant]
     Active Substance: CHONDROITIN SULFATE (CHICKEN)
     Indication: Osteoarthritis
     Dosage: STRENGTH : 400 MG, 60 CAPSULES , UNIT DOSE : 1 DOSAGE FORM, FREQUENCY TIME : 2 DAYS

REACTIONS (1)
  - Hypertensive crisis [Unknown]

NARRATIVE: CASE EVENT DATE: 20220815
